FAERS Safety Report 5626789-1 (Version None)
Quarter: 2008Q1

REPORT INFORMATION
  Report Type: 
  Country: None (occurrence: None)
  Receive Date: 20080214
  Receipt Date: 20080206
  Transmission Date: 20080703
  Serious: Yes (Other)
  Sender: FDA-Public Use
  Company Number: GB-PFIZER INC-2008012307

PATIENT
  Age: 69 Year
  Sex: Male
  Weight: 72 kg

DRUGS (4)
  1. CHANTIX [Suspect]
     Indication: SMOKING CESSATION THERAPY
     Route: 048
  2. AMOXICILLIN [Concomitant]
  3. COMBIVENT [Concomitant]
  4. ALBUTEROL [Concomitant]

REACTIONS (2)
  - DIARRHOEA [None]
  - GYNAECOMASTIA [None]
